FAERS Safety Report 6542319-4 (Version None)
Quarter: 2010Q1

REPORT INFORMATION
  Report Type: 
  Country: None (occurrence: None)
  Receive Date: 20100114
  Receipt Date: 20100114
  Transmission Date: 20100710
  Serious: Yes (Hospitalization)
  Sender: FDA-Public Use
  Company Number: None

PATIENT
  Sex: Female
  Weight: 56.6 kg

DRUGS (5)
  1. FERAHEME [Suspect]
     Indication: IRON DEFICIENCY ANAEMIA
     Dosage: 510 MG ONCE IV
     Route: 042
     Dates: start: 20091209
  2. HEMODIALYSIS [Concomitant]
  3. ESRD [Concomitant]
  4. ASTHMA [Concomitant]
  5. HISTORY OF CAD AND AID IMPLANTATION [Concomitant]

REACTIONS (2)
  - DYSPNOEA [None]
  - PARAESTHESIA ORAL [None]
